FAERS Safety Report 6272441-1 (Version None)
Quarter: 2009Q3

REPORT INFORMATION
  Report Type: 
  Country: None (occurrence: None)
  Receive Date: 20090717
  Receipt Date: 20090708
  Transmission Date: 20100115
  Serious: Yes (Hospitalization)
  Sender: FDA-Public Use
  Company Number: NZ-ASTRAZENECA-2009SE04232

PATIENT
  Age: 24784 Day
  Sex: Male

DRUGS (2)
  1. PRILOSEC [Suspect]
     Route: 048
     Dates: start: 20000301, end: 20000407
  2. MAGNESIUM HYDROXIDE TAB [Concomitant]
     Dosage: USED AT NIGHT
     Route: 048

REACTIONS (2)
  - RENAL FAILURE ACUTE [None]
  - TUBULOINTERSTITIAL NEPHRITIS [None]
